FAERS Safety Report 10146788 (Version 4)
Quarter: 2015Q4

REPORT INFORMATION
  Report Type: Spontaneous
  Country: JP (occurrence: JP)
  Receive Date: 20140501
  Receipt Date: 20151109
  Transmission Date: 20160304
  Serious: Yes (Death, Life-Threatening, Hospitalization)
  Sender: FDA-Public Use
  Company Number: JP-BAYER-2014-060672

PATIENT
  Age: 79 Year
  Sex: Male
  Weight: 49 kg

DRUGS (3)
  1. NEXAVAR [Suspect]
     Active Substance: SORAFENIB
     Indication: METASTASES TO ADRENALS
     Dosage: 400 MG, DAILY
     Route: 048
     Dates: start: 20130709, end: 20130713
  2. NEXAVAR [Suspect]
     Active Substance: SORAFENIB
     Indication: RENAL CELL CARCINOMA
     Dosage: 800 MG, QD
     Route: 048
     Dates: start: 20130628
  3. NEXAVAR [Suspect]
     Active Substance: SORAFENIB
     Indication: RENAL CELL CARCINOMA
     Dosage: 200 MG DAILY DOSE
     Route: 048
     Dates: start: 20130723, end: 20131004

REACTIONS (5)
  - Haematemesis [Recovered/Resolved]
  - Melaena [Recovered/Resolved]
  - Renal cell carcinoma [Fatal]
  - Fatigue [Recovered/Resolved]
  - Gastric ulcer haemorrhage [Recovered/Resolved]

NARRATIVE: CASE EVENT DATE: 20131004
